FAERS Safety Report 19528661 (Version 1)
Quarter: 2021Q3

REPORT INFORMATION
  Report Type: Spontaneous
  Country: PT (occurrence: PT)
  Receive Date: 20210713
  Receipt Date: 20210713
  Transmission Date: 20211014
  Serious: Yes (Other)
  Sender: FDA-Public Use
  Company Number: PT-AUROBINDO-AUR-APL-2021-023008

PATIENT
  Age: 52 Year
  Sex: Female
  Weight: 69 kg

DRUGS (8)
  1. PERTUZUMAB. [Suspect]
     Active Substance: PERTUZUMAB
     Indication: BREAST CANCER
     Dosage: MOST RECENT DOSE PRIOR TO EVENT ONSET: 21/MAR/2019
     Route: 042
     Dates: start: 20180802
  2. TRASTUZUMAB EMTANSINE [Suspect]
     Active Substance: ADO-TRASTUZUMAB EMTANSINE
     Indication: BREAST CANCER
     Dosage: 3.76 MILLIGRAM/KILOGRAM,1 MONTH(13/MAR/2020 MOST RECENT DOSE )
     Route: 042
     Dates: start: 20190905
  3. LAPATINIB [Suspect]
     Active Substance: LAPATINIB
     Indication: BREAST CANCER
     Dosage: 1000 MILLIGRAM 3 WEEK
     Route: 048
     Dates: start: 20190510
  4. ANASTROZOLE. [Suspect]
     Active Substance: ANASTROZOLE
     Indication: BREAST CANCER
     Dosage: 20 MILLIGRAM 4 WEEK
     Route: 048
     Dates: start: 20190131
  5. TRASTUZUMAB. [Suspect]
     Active Substance: TRASTUZUMAB
     Indication: BREAST CANCER
     Dosage: 414 MILLIGRAM(MOST RECENT DOSE PRIOR TO ONSET OF EVENT: 21/MAR/2019 3 WEEK)
     Route: 042
     Dates: start: 20180802
  6. CAPECITABINE FILM COATED TABLET [Suspect]
     Active Substance: CAPECITABINE
     Indication: PRODUCT USED FOR UNKNOWN INDICATION
     Dosage: 1150 MILLIGRAM 3 WEEK
     Route: 048
     Dates: start: 20190510
  7. DOCETAXEL. [Suspect]
     Active Substance: DOCETAXEL
     Indication: BREAST CANCER
     Dosage: 136.8 MILLIGRAM(V)
     Route: 042
     Dates: start: 20180803
  8. VINORELBINE [Suspect]
     Active Substance: VINORELBINE TARTRATE
     Indication: BREAST CANCER
     Dosage: UNK,1 MONTH
     Route: 042
     Dates: start: 20201201

REACTIONS (1)
  - Neutropenia [Recovered/Resolved]

NARRATIVE: CASE EVENT DATE: 20210102
